FAERS Safety Report 9969765 (Version 1)
Quarter: 2014Q1

REPORT INFORMATION
  Report Type: Spontaneous
  Country: US (occurrence: None)
  Receive Date: 20140304
  Receipt Date: 20140304
  Transmission Date: 20141002
  Serious: Yes (Hospitalization)
  Sender: FDA-Public Use
  Company Number: None

PATIENT
  Age: 69 Year
  Sex: Female

DRUGS (1)
  1. KETOROLAC GENERERIC FOR TORADOL, 10 MG, TEVA [Suspect]
     Indication: SURGERY
     Dosage: TAKEN BY MOUTH
     Dates: start: 20140128, end: 20140130

REACTIONS (3)
  - Vomiting [None]
  - Rectal haemorrhage [None]
  - Gastrointestinal haemorrhage [None]
